FAERS Safety Report 9198639 (Version 2)
Quarter: 2013Q2

REPORT INFORMATION
  Report Type: Spontaneous
  Country: FR (occurrence: FR)
  Receive Date: 20130329
  Receipt Date: 20130515
  Transmission Date: 20140414
  Serious: Yes (Death)
  Sender: FDA-Public Use
  Company Number: FR-JNJFOC-20130313203

PATIENT
  Sex: Male
  Weight: 82 kg

DRUGS (5)
  1. RISPERDAL CONSTA [Suspect]
     Indication: SCHIZOPHRENIA
     Route: 030
     Dates: start: 2008
  2. CYMBALTA [Concomitant]
     Indication: DEPRESSION
     Route: 048
  3. TIAPRIDAL [Concomitant]
     Indication: ANXIETY
     Route: 048
  4. XANAX [Concomitant]
     Indication: ANXIETY
     Route: 048
  5. AOTAL [Concomitant]
     Indication: ALCOHOLISM
     Dosage: 2 IN THE MORNING AND 2 ON THE EVENING
     Route: 048

REACTIONS (1)
  - Cardiovascular disorder [Fatal]
